FAERS Safety Report 21968461 (Version 1)
Quarter: 2023Q1

REPORT INFORMATION
  Report Type: Spontaneous
  Country: FR (occurrence: FR)
  Receive Date: 20230208
  Receipt Date: 20230208
  Transmission Date: 20230418
  Serious: Yes (Other)
  Sender: FDA-Public Use
  Company Number: FR-ORGANON-O2301FRA002790

PATIENT
  Age: 65 Year
  Sex: Male

DRUGS (1)
  1. LIPTRUZET [Suspect]
     Active Substance: ATORVASTATIN CALCIUM\EZETIMIBE
     Dosage: 10MG/80MG, 1 TABLET IN THE EVENING
     Route: 048
     Dates: start: 202301, end: 20230127

REACTIONS (4)
  - Erectile dysfunction [Unknown]
  - Haematospermia [Unknown]
  - Chromaturia [Not Recovered/Not Resolved]
  - Decreased appetite [Unknown]

NARRATIVE: CASE EVENT DATE: 20230101
